FAERS Safety Report 21329789 (Version 1)
Quarter: 2022Q3

REPORT INFORMATION
  Report Type: Spontaneous
  Country: US (occurrence: None)
  Receive Date: 20220913
  Receipt Date: 20220913
  Transmission Date: 20221026
  Serious: No
  Sender: FDA-Public Use
  Company Number: None

PATIENT
  Age: 67 Year
  Sex: Female
  Weight: 87.75 kg

DRUGS (4)
  1. SPIRIVA RESPIMAT [Suspect]
     Active Substance: TIOTROPIUM BROMIDE
     Indication: Chronic obstructive pulmonary disease
     Dosage: OTHER QUANTITY : 2 PUFF(S);?
     Route: 048
     Dates: start: 20211001, end: 20220912
  2. OXYGEN CONCENTRATOR (1 LITER) W/CPAP [Concomitant]
  3. MULTI-VITAMIN [Concomitant]
     Active Substance: .ALPHA.-TOCOPHEROL ACETATE, DL-\ASCORBIC ACID\CYANOCOBALAMIN\FLUORIDE ION\FOLIC ACID\NIACIN\PYRIDOXI
  4. VITAMIN D [Concomitant]
     Active Substance: VITAMIN D NOS

REACTIONS (6)
  - Candida infection [None]
  - Tongue discolouration [None]
  - Oropharyngeal pain [None]
  - Tongue blistering [None]
  - Fatigue [None]
  - Throat irritation [None]

NARRATIVE: CASE EVENT DATE: 20220802
